FAERS Safety Report 9643924 (Version 3)
Quarter: 2013Q4

REPORT INFORMATION
  Report Type: Spontaneous
  Country: JP (occurrence: JP)
  Receive Date: 20131024
  Receipt Date: 20131230
  Transmission Date: 20140711
  Serious: Yes (Hospitalization, Other)
  Sender: FDA-Public Use
  Company Number: JP-TEVA-438065USA

PATIENT
  Age: 56 Year
  Sex: Male

DRUGS (14)
  1. BENDAMUSTINE [Suspect]
     Indication: WALDENSTROM^S MACROGLOBULINAEMIA
     Route: 042
     Dates: start: 20120912, end: 20120913
  2. BENDAMUSTINE [Suspect]
     Route: 042
     Dates: start: 20121010, end: 20121011
  3. BENDAMUSTINE [Suspect]
     Route: 042
     Dates: start: 20121128, end: 20121129
  4. BENDAMUSTINE [Suspect]
     Route: 042
     Dates: start: 20130205, end: 20130206
  5. BENDAMUSTINE [Suspect]
     Route: 042
     Dates: start: 20130320, end: 20130321
  6. BENDAMUSTINE [Suspect]
     Route: 042
     Dates: start: 20130417, end: 20130418
  7. AMIODARONE [Suspect]
     Indication: WALDENSTROM^S MACROGLOBULINAEMIA
  8. NON-PYRINE COLD PREPARATION [Suspect]
     Route: 048
  9. RITUXIMAB [Concomitant]
     Indication: WALDENSTROM^S MACROGLOBULINAEMIA
     Dates: start: 20120911
  10. RITUXIMAB [Concomitant]
     Dates: start: 20121009
  11. RITUXIMAB [Concomitant]
     Dates: start: 20121127
  12. RITUXIMAB [Concomitant]
     Dates: start: 20130204
  13. RITUXIMAB [Concomitant]
     Dates: start: 20130319
  14. RITUXIMAB [Concomitant]
     Dates: start: 20130416

REACTIONS (5)
  - Interstitial lung disease [Recovered/Resolved]
  - Stevens-Johnson syndrome [Recovered/Resolved]
  - Cytomegalovirus infection [Recovered/Resolved]
  - Off label use [Unknown]
  - Leukopenia [Recovered/Resolved]
